FAERS Safety Report 6834843-1 (Version None)
Quarter: 2010Q3

REPORT INFORMATION
  Report Type: 
  Country: None (occurrence: None)
  Receive Date: 20100712
  Receipt Date: 20070417
  Transmission Date: 20110219
  Serious: No
  Sender: FDA-Public Use
  Company Number: US-PFIZER INC-2007031829

PATIENT
  Sex: Female
  Weight: 49.9 kg

DRUGS (2)
  1. CHANTIX [Suspect]
     Indication: SMOKING CESSATION THERAPY
     Dosage: 1-1.5 MG
     Route: 048
     Dates: start: 20070413
  2. SYNTHROID [Concomitant]
     Indication: THYROID DISORDER

REACTIONS (7)
  - ABNORMAL DREAMS [None]
  - ADVERSE EVENT [None]
  - CHOKING [None]
  - CONSTIPATION [None]
  - FLATULENCE [None]
  - NAUSEA [None]
  - SOMNOLENCE [None]
